FAERS Safety Report 19056870 (Version 2)
Quarter: 2021Q1

REPORT INFORMATION
  Report Type: Spontaneous
  Country: TN (occurrence: TN)
  Receive Date: 20210325
  Receipt Date: 20210329
  Transmission Date: 20210420
  Serious: Yes (Other)
  Sender: FDA-Public Use
  Company Number: TN-PFIZER INC-2021304685

PATIENT
  Age: 42 Year
  Sex: Female

DRUGS (1)
  1. PIROXICAM. [Suspect]
     Active Substance: PIROXICAM
     Indication: TOOTHACHE
     Dosage: 20 MG
     Route: 030

REACTIONS (2)
  - Rash pustular [Recovered/Resolved]
  - Acute generalised exanthematous pustulosis [Recovered/Resolved]
